FAERS Safety Report 16762569 (Version 1)
Quarter: 2019Q3

REPORT INFORMATION
  Report Type: Spontaneous
  Country: FR (occurrence: FR)
  Receive Date: 20190831
  Receipt Date: 20190831
  Transmission Date: 20191005
  Serious: Yes (Hospitalization)
  Sender: FDA-Public Use
  Company Number: FR-TEVA-2019-FR-1099675

PATIENT
  Age: 67 Year
  Sex: Male

DRUGS (2)
  1. TERALITHE [Suspect]
     Active Substance: LITHIUM CARBONATE
     Dosage: 2 DOSAGE FORM
     Route: 048
     Dates: end: 20190626
  2. KETOPROFENE [Suspect]
     Active Substance: KETOPROFEN
     Dosage: 100 MG
     Route: 065
     Dates: start: 20190622, end: 20190624

REACTIONS (1)
  - Acute kidney injury [Recovered/Resolved]

NARRATIVE: CASE EVENT DATE: 20190626
